FAERS Safety Report 9830265 (Version 1)
Quarter: 2014Q1

REPORT INFORMATION
  Report Type: Spontaneous
  Country: US (occurrence: US)
  Receive Date: 20140120
  Receipt Date: 20140120
  Transmission Date: 20141002
  Serious: Yes (Death)
  Sender: FDA-Public Use
  Company Number: US-PFIZER INC-2014007938

PATIENT
  Age: 57 Year
  Sex: Female

DRUGS (2)
  1. DEXTROMETHORPHAN HBR [Suspect]
     Route: 048
  2. ACETAMINOPHEN/DEXTROMETHORPHAN/DOXYLAMINE/PSEUDOEPHEDRINE [Suspect]
     Route: 048

REACTIONS (3)
  - Death [Fatal]
  - Cardiac arrest [Fatal]
  - Respiratory arrest [Fatal]
